FAERS Safety Report 10306558 (Version 2)
Quarter: 2014Q3

REPORT INFORMATION
  Report Type: Spontaneous
  Country: US (occurrence: US)
  Receive Date: 20140715
  Receipt Date: 20140801
  Transmission Date: 20150326
  Serious: No
  Sender: FDA-Public Use
  Company Number: US-BAYER-2014-098431

PATIENT
  Age: 57 Year
  Sex: Female

DRUGS (4)
  1. VENTAVIS [Suspect]
     Active Substance: ILOPROST
     Indication: PRODUCT USED FOR UNKNOWN INDICATION
     Dosage: 3 - 4 DOSES
     Route: 065
  2. WARFARIN [Concomitant]
     Active Substance: WARFARIN
  3. ADEMPAS [Suspect]
     Active Substance: RIOCIGUAT
     Indication: PRODUCT USED FOR UNKNOWN INDICATION
  4. LETAIRIS [Suspect]
     Active Substance: AMBRISENTAN
     Indication: PRODUCT USED FOR UNKNOWN INDICATION
     Dosage: 10 MG, QD
     Route: 065
     Dates: start: 20110122

REACTIONS (10)
  - Abdominal discomfort [None]
  - Weight increased [None]
  - Pain [None]
  - Dyspnoea [None]
  - Myalgia [None]
  - Nausea [None]
  - Fatigue [None]
  - Dyspepsia [None]
  - Headache [None]
  - Dizziness [None]
